FAERS Safety Report 5455750-5 (Version None)
Quarter: 2007Q3

REPORT INFORMATION
  Report Type: 
  Country: None (occurrence: None)
  Receive Date: 20070918
  Receipt Date: 20070702
  Transmission Date: 20080115
  Serious: Yes (Other)
  Sender: FDA-Public Use
  Company Number: US-ASTRAZENECA-2006UW22568

PATIENT
  Age: 14330 Day
  Sex: Male

DRUGS (1)
  1. SEROQUEL [Suspect]
     Route: 048
     Dates: start: 20030501, end: 20060208

REACTIONS (2)
  - DIABETES MELLITUS [None]
  - PANCREATITIS [None]
